FAERS Safety Report 6431436-5 (Version None)
Quarter: 2009Q4

REPORT INFORMATION
  Report Type: 
  Country: None (occurrence: None)
  Receive Date: 20091105
  Receipt Date: 20091105
  Transmission Date: 20100525
  Serious: Yes (Life-Threatening, Disabling, Other)
  Sender: FDA-Public Use
  Company Number: None

PATIENT
  Age: 54 Year
  Sex: Female
  Weight: 72.5755 kg

DRUGS (2)
  1. ABILIFY [Suspect]
     Dosage: 1 X A DAY NIGHT
  2. REGLAN [Suspect]
     Dosage: 4 TIMES A DAY

REACTIONS (1)
  - DIABETES MELLITUS [None]
